FAERS Safety Report 25352627 (Version 1)
Quarter: 2025Q2

REPORT INFORMATION
  Report Type: Report from Study
  Country: JP (occurrence: JP)
  Receive Date: 20250523
  Receipt Date: 20250523
  Transmission Date: 20250717
  Serious: Yes (Hospitalization)
  Sender: EISAI
  Company Number: JP-Eisai-EC-2025-189704

PATIENT
  Age: 72 Year

DRUGS (1)
  1. LECANEMAB [Suspect]
     Active Substance: LECANEMAB
     Indication: Dementia
     Dates: start: 202403

REACTIONS (4)
  - Rash [Unknown]
  - Oedema peripheral [Unknown]
  - Pyrexia [Unknown]
  - Delirium [Unknown]

NARRATIVE: CASE EVENT DATE: 20240101
